FAERS Safety Report 4893332-4 (Version None)
Quarter: 2006Q1

REPORT INFORMATION
  Report Type: 
  Country: None (occurrence: None)
  Receive Date: 20060125
  Receipt Date: 20060125
  Transmission Date: 20060701
  Serious: Yes (Disabling)
  Sender: FDA-Public Use
  Company Number: None

PATIENT
  Age: 46 Year
  Sex: Female
  Weight: 74.8435 kg

DRUGS (1)
  1. TOPAMAX [Suspect]
     Dosage: ONCE A DAY

REACTIONS (6)
  - BLINDNESS TRANSIENT [None]
  - HEADACHE [None]
  - INTRAOCULAR PRESSURE INCREASED [None]
  - MUSCLE SPASMS [None]
  - VISION BLURRED [None]
  - VISUAL ACUITY REDUCED [None]
